FAERS Safety Report 10180671 (Version 1)
Quarter: 2014Q2

REPORT INFORMATION
  Report Type: Spontaneous
  Country: US (occurrence: US)
  Receive Date: 20140519
  Receipt Date: 20140519
  Transmission Date: 20141212
  Serious: No
  Sender: FDA-Public Use
  Company Number: US-AMGEN INC.-USASP2014021652

PATIENT
  Age: 50 Year
  Sex: Female

DRUGS (3)
  1. PROLIA [Suspect]
     Indication: OSTEOPOROSIS POSTMENOPAUSAL
     Dosage: UNK
     Route: 065
     Dates: start: 20140303
  2. VITAMIN D                          /00107901/ [Concomitant]
  3. CALCIUM [Concomitant]

REACTIONS (10)
  - Feeling abnormal [Recovering/Resolving]
  - Feeling hot [Recovered/Resolved]
  - Oral herpes [Recovered/Resolved]
  - Fluid retention [Not Recovered/Not Resolved]
  - Insomnia [Unknown]
  - Arthralgia [Unknown]
  - Myalgia [Unknown]
  - Bone pain [Unknown]
  - Fatigue [Unknown]
  - Erythema [Recovered/Resolved]
